FAERS Safety Report 6988117-9 (Version None)
Quarter: 2010Q3

REPORT INFORMATION
  Report Type: 
  Country: None (occurrence: None)
  Receive Date: 20100916
  Receipt Date: 20100909
  Transmission Date: 20110219
  Serious: Yes (Death)
  Sender: FDA-Public Use
  Company Number: B0673808A

PATIENT
  Sex: Male

DRUGS (7)
  1. PURINETHOL [Suspect]
     Dosage: 100MG CYCLIC
     Route: 048
     Dates: start: 20091015, end: 20091201
  2. VALACYCLOVIR HYDROCHLORIDE [Suspect]
     Indication: PROPHYLAXIS
     Dosage: 500MG TWICE PER DAY
     Route: 048
     Dates: start: 20091001
  3. METHOTREXATE [Suspect]
     Route: 048
     Dates: start: 20091001, end: 20091201
  4. PENTACARINAT [Suspect]
     Indication: INFECTION PROPHYLAXIS
     Dosage: 1SPR MONTHLY
     Route: 055
     Dates: start: 20091001
  5. CYTARABINE [Concomitant]
     Route: 065
     Dates: start: 20090101
  6. IDARUBICIN HCL [Concomitant]
     Route: 065
     Dates: start: 20090101
  7. BELUSTINE [Concomitant]
     Route: 065

REACTIONS (5)
  - BONE MARROW FAILURE [None]
  - GENERAL PHYSICAL HEALTH DETERIORATION [None]
  - PANCYTOPENIA [None]
  - PYREXIA [None]
  - WEIGHT DECREASED [None]
